FAERS Safety Report 17210065 (Version 5)
Quarter: 2020Q1

REPORT INFORMATION
  Report Type: Spontaneous
  Country: US (occurrence: US)
  Receive Date: 20191227
  Receipt Date: 20200127
  Transmission Date: 20200409
  Serious: Yes (Death, Life-Threatening, Hospitalization)
  Sender: FDA-Public Use
  Company Number: US-ACTELION-A-US2019-199929

PATIENT
  Age: 69 Year
  Sex: Female

DRUGS (5)
  1. VELETRI [Suspect]
     Active Substance: EPOPROSTENOL
     Indication: PULMONARY ARTERIAL HYPERTENSION
     Dosage: 29 NG/KG, PER MIN
     Route: 042
  2. TRACLEER [Suspect]
     Active Substance: BOSENTAN
     Indication: PULMONARY ARTERIAL HYPERTENSION
     Dosage: 125 MG, BID
     Route: 048
     Dates: start: 20091023
  3. TADALAFIL. [Concomitant]
     Active Substance: TADALAFIL
     Dosage: 40 MG, QD
  4. OXYGEN. [Concomitant]
     Active Substance: OXYGEN
  5. VELETRI [Suspect]
     Active Substance: EPOPROSTENOL
     Dosage: 50 NG/KG, PER MIN
     Route: 042
     Dates: start: 20150923

REACTIONS (24)
  - Syncope [Unknown]
  - Cor pulmonale acute [Unknown]
  - Haemoglobin decreased [Unknown]
  - Death [Fatal]
  - Adverse reaction [Unknown]
  - Pulseless electrical activity [Unknown]
  - Ischaemic hepatitis [Recovering/Resolving]
  - Hypernatraemia [Unknown]
  - Cardiac failure [Unknown]
  - Hypoxia [Unknown]
  - Cardiac arrest [Unknown]
  - Haemodynamic instability [Unknown]
  - Atelectasis [Unknown]
  - Platelet count decreased [Unknown]
  - Pulmonary arterial hypertension [Unknown]
  - Cardiogenic shock [Unknown]
  - Gastrointestinal disorder [Unknown]
  - Pleural effusion [Unknown]
  - Pyrexia [Unknown]
  - Alanine aminotransferase increased [Recovering/Resolving]
  - Pneumonia bacterial [Unknown]
  - Ventilation perfusion mismatch [Unknown]
  - Pneumonia staphylococcal [Unknown]
  - Liver injury [Recovering/Resolving]

NARRATIVE: CASE EVENT DATE: 20200107
